FAERS Safety Report 21004696 (Version 1)
Quarter: 2022Q2

REPORT INFORMATION
  Report Type: Spontaneous
  Country: US (occurrence: US)
  Receive Date: 20220624
  Receipt Date: 20220624
  Transmission Date: 20220721
  Serious: No
  Sender: FDA-Public Use
  Company Number: US-PFIZER INC-PV202200007955

PATIENT
  Age: 56 Year
  Sex: Female
  Weight: 90.703 kg

DRUGS (1)
  1. DOXYCYCLINE [Suspect]
     Active Substance: DOXYCYCLINE
     Dosage: UNK

REACTIONS (3)
  - Urticaria [Unknown]
  - Pruritus [Unknown]
  - Vomiting [Unknown]

NARRATIVE: CASE EVENT DATE: 20220101
